FAERS Safety Report 15976373 (Version 1)
Quarter: 2019Q1

REPORT INFORMATION
  Report Type: Report from Study
  Country: IL (occurrence: IL)
  Receive Date: 20190218
  Receipt Date: 20190218
  Transmission Date: 20190418
  Serious: Yes (Hospitalization)
  Sender: FDA-Public Use
  Company Number: IL-SA-2019SA039478

PATIENT
  Age: 75 Year
  Sex: Male

DRUGS (2)
  1. INSULIN GLARGINE/LIXISENATIDE [Suspect]
     Active Substance: INSULIN GLARGINE\LIXISENATIDE
     Dosage: 20 DOSE STEPS ONCE DAILY
     Route: 058
     Dates: start: 20190103
  2. SOLOSTAR [Suspect]
     Active Substance: DEVICE
     Dosage: 20 DOSE STEPS, QD
     Route: 058
     Dates: start: 20190103

REACTIONS (3)
  - Product use issue [Unknown]
  - Contusion [Recovering/Resolving]
  - Fall [Unknown]

NARRATIVE: CASE EVENT DATE: 20190103
